FAERS Safety Report 6096993-X (Version None)
Quarter: 2009Q1

REPORT INFORMATION
  Report Type: 
  Country: None (occurrence: None)
  Receive Date: 20090227
  Receipt Date: 20090216
  Transmission Date: 20090719
  Serious: Yes (Other)
  Sender: FDA-Public Use
  Company Number: PHHY2009DE06188

PATIENT
  Age: 61 Year
  Sex: Female

DRUGS (2)
  1. DIOVAN HCT [Suspect]
     Dosage: 160/25MG (HALF DF/DAY)
     Route: 048
     Dates: start: 20090119, end: 20090119
  2. BISOPROLOL [Concomitant]

REACTIONS (5)
  - BLISTER [None]
  - ERYTHEMA [None]
  - FEELING HOT [None]
  - PYREXIA [None]
  - SUNBURN [None]
